FAERS Safety Report 4344080-0 (Version None)
Quarter: 2004Q2

REPORT INFORMATION
  Report Type: 
  Country: None (occurrence: None)
  Receive Date: 20040419
  Receipt Date: 20040401
  Transmission Date: 20050107
  Serious: Yes (Hospitalization, Other)
  Sender: FDA-Public Use
  Company Number: 186099

PATIENT
  Age: 49 Year
  Sex: Female

DRUGS (7)
  1. AVONEX [Suspect]
     Indication: MULTIPLE SCLEROSIS
     Dosage: 30 MCG QW IM
     Route: 030
     Dates: start: 20010124
  2. AMOXICILLIN [Concomitant]
  3. PNEUMOVAX 23 [Concomitant]
  4. EMULSION LIQUID PARAFFIN COMPOUND [Concomitant]
  5. NAPROXEN [Concomitant]
  6. DIPIDOLOR [Concomitant]
  7. PETHIDINE [Concomitant]

REACTIONS (11)
  - DIZZINESS [None]
  - HAEMORRHAGE [None]
  - HEADACHE [None]
  - HODGKIN'S DISEASE [None]
  - HYSTERECTOMY [None]
  - MENSTRUATION IRREGULAR [None]
  - POST PROCEDURAL COMPLICATION [None]
  - RED BLOOD CELL SEDIMENTATION RATE INCREASED [None]
  - SPLENIC HAEMORRHAGE [None]
  - SPLENIC RUPTURE [None]
  - UTERINE LEIOMYOMA [None]
